FAERS Safety Report 8455033-5 (Version None)
Quarter: 2012Q2

REPORT INFORMATION
  Report Type: 
  Country: None (occurrence: None)
  Receive Date: 20120615
  Receipt Date: 20120615
  Transmission Date: 20120825
  Serious: Yes (Hospitalization)
  Sender: FDA-Public Use
  Company Number: None

PATIENT
  Age: 49 Year
  Sex: Female
  Weight: 62.1428 kg

DRUGS (2)
  1. CLOPIDOGREL [Suspect]
     Indication: MYOCARDIAL INFARCTION
     Dosage: 75 MG 1 DAY
     Dates: start: 20120524, end: 20120527
  2. CLOPIDOGREL [Suspect]
     Indication: ANTICOAGULANT THERAPY
     Dosage: 75 MG 1 DAY
     Dates: start: 20120524, end: 20120527

REACTIONS (6)
  - EYE SWELLING [None]
  - PRURITUS [None]
  - ANAPHYLACTIC SHOCK [None]
  - URTICARIA [None]
  - LIP SWELLING [None]
  - DYSPNOEA [None]
